FAERS Safety Report 4683230-3 (Version None)
Quarter: 2005Q2

REPORT INFORMATION
  Report Type: 
  Country: None (occurrence: None)
  Receive Date: 20050602
  Receipt Date: 20050128
  Transmission Date: 20051028
  Serious: No
  Sender: FDA-Public Use
  Company Number: USA050189469

PATIENT
  Sex: Female

DRUGS (3)
  1. CYMBALTA [Suspect]
     Indication: BIPOLAR I DISORDER
     Dosage: 90 MG DAY
     Dates: start: 20041101
  2. HALCION [Concomitant]
  3. BUSPAR [Concomitant]

REACTIONS (1)
  - PRESCRIBED OVERDOSE [None]
